FAERS Safety Report 17760186 (Version 1)
Quarter: 2020Q2

REPORT INFORMATION
  Report Type: Spontaneous
  Country: US (occurrence: US)
  Receive Date: 20200508
  Receipt Date: 20200508
  Transmission Date: 20200714
  Serious: No
  Sender: FDA-Public Use
  Company Number: US-TEVA-2020-US-1232077

PATIENT
  Sex: Female

DRUGS (3)
  1. CALCITRIOL. [Suspect]
     Active Substance: CALCITRIOL
     Route: 065
  2. VITAMIN D [Concomitant]
     Active Substance: VITAMIN D NOS
  3. CALCITRIOL. [Suspect]
     Active Substance: CALCITRIOL
     Route: 065
     Dates: start: 201910, end: 202001

REACTIONS (2)
  - Drug ineffective [Unknown]
  - Dry skin [Unknown]
